FAERS Safety Report 7015510-0 (Version None)
Quarter: 2010Q3

REPORT INFORMATION
  Report Type: 
  Country: None (occurrence: None)
  Receive Date: 20100927
  Receipt Date: 20100916
  Transmission Date: 20110219
  Serious: Yes (Other)
  Sender: FDA-Public Use
  Company Number: US-ELI_LILLY_AND_COMPANY-US201009004983

PATIENT
  Age: 66 Year
  Sex: Female

DRUGS (3)
  1. FORTEO [Suspect]
     Indication: OSTEOPOROSIS
     Dosage: 20 UG, DAILY (1/D)
     Route: 065
     Dates: start: 20070301, end: 20090301
  2. CORTICOSTEROIDS [Concomitant]
     Dosage: UNK, UNKNOWN
     Route: 065
  3. ESTROGEN [Concomitant]
     Dosage: UNK, UNKNOWN
     Route: 065
     Dates: start: 19900101

REACTIONS (2)
  - FALL [None]
  - FOOT FRACTURE [None]
